FAERS Safety Report 9890347 (Version 3)
Quarter: 2014Q2

REPORT INFORMATION
  Report Type: Report from Study
  Country: US (occurrence: US)
  Receive Date: 20140212
  Receipt Date: 20140417
  Transmission Date: 20141212
  Serious: Yes (Other)
  Sender: FDA-Public Use
  Company Number: US-ROCHE-1342354

PATIENT
  Sex: Male
  Weight: 76.5 kg

DRUGS (7)
  1. NUTROPIN AQ [Suspect]
     Indication: GROWTH HORMONE DEFICIENCY
     Dosage: NUSPIN 20 MG
     Route: 058
  2. NUTROPIN AQ [Suspect]
     Indication: HYPOPITUITARISM
  3. FLORINEF [Concomitant]
     Indication: HYPOPITUITARISM
     Route: 048
     Dates: start: 2004
  4. CORTEF [Concomitant]
     Indication: HYPOPITUITARISM
     Route: 048
     Dates: start: 2004
  5. DDAVP [Concomitant]
     Indication: HYPOPITUITARISM
     Route: 048
     Dates: start: 2004
  6. TESTOSTERONE [Concomitant]
     Indication: HYPOPITUITARISM
     Route: 030
     Dates: start: 2012
  7. LEVOTHYROXINE [Concomitant]
     Route: 048
     Dates: start: 2004

REACTIONS (1)
  - Mass [Recovering/Resolving]
